FAERS Safety Report 7543756-1 (Version None)
Quarter: 2011Q2

REPORT INFORMATION
  Report Type: 
  Country: None (occurrence: None)
  Receive Date: 20110613
  Receipt Date: 20040831
  Transmission Date: 20111010
  Serious: Yes (Hospitalization)
  Sender: FDA-Public Use
  Company Number: PHHO2004JP12275

PATIENT
  Sex: Male

DRUGS (5)
  1. LOCHOLEST [Suspect]
     Indication: HYPERCHOLESTEROLAEMIA
     Dosage: 20 MG, QD
     Route: 048
     Dates: start: 20001005
  2. ZESTRIL [Concomitant]
     Indication: HYPERTENSION
  3. CEROCRAL [Concomitant]
     Indication: CEREBRAL HAEMORRHAGE
  4. KETAS [Concomitant]
     Indication: CEREBELLAR HAEMORRHAGE
  5. URINORM [Concomitant]
     Indication: HYPERURICAEMIA

REACTIONS (2)
  - HAEMATOCHEZIA [None]
  - LARGE INTESTINE CARCINOMA [None]
